FAERS Safety Report 5264600-1 (Version None)
Quarter: 2007Q1

REPORT INFORMATION
  Report Type: 
  Country: None (occurrence: None)
  Receive Date: 20070314
  Receipt Date: 20070307
  Transmission Date: 20070707
  Serious: Yes (Hospitalization)
  Sender: FDA-Public Use
  Company Number: US-SOLVAY-00207000764

PATIENT
  Age: 23226 Day
  Sex: Male
  Weight: 81.6 kg

DRUGS (6)
  1. ANDROGEL [Suspect]
     Indication: BLOOD TESTOSTERONE DECREASED
     Dosage: DAILY DOSE: 10 GRAM(S)
     Route: 062
     Dates: start: 20040419, end: 20061201
  2. TARKA [Concomitant]
     Indication: HYPERTENSION
     Dosage: DAILY DOSE:  2 MG/180 MG DAILY
     Route: 048
     Dates: start: 20070104
  3. PLAVIX [Concomitant]
     Indication: PLATELET AGGREGATION ABNORMAL
     Dosage: DAILY DOSE: 75 MILLIGRAM(S)
     Route: 048
  4. LIPITOR [Concomitant]
     Indication: HYPERCHOLESTEROLAEMIA
     Dosage: DAILY DOSE: 20 MILLIGRAM(S)
     Route: 048
  5. ASPIRIN [Concomitant]
     Indication: ILL-DEFINED DISORDER
     Dosage: DAILY DOSE: 325 MILLIGRAM(S)
     Route: 048
  6. ATENOLOL [Concomitant]
     Indication: ILL-DEFINED DISORDER
     Dosage: DAILY DOSE: 25 MILLIGRAM(S)
     Route: 048

REACTIONS (1)
  - CEREBROVASCULAR ACCIDENT [None]
